FAERS Safety Report 5361324-7 (Version None)
Quarter: 2007Q2

REPORT INFORMATION
  Report Type: 
  Country: None (occurrence: None)
  Receive Date: 20070612
  Receipt Date: 20070601
  Transmission Date: 20071010
  Serious: Yes (Hospitalization)
  Sender: FDA-Public Use
  Company Number: GXKR2007NL04856

PATIENT
  Age: 65 Year
  Sex: Female

DRUGS (6)
  1. NITROFURANTOIN [Suspect]
     Indication: CYSTITIS
     Dosage: 50MG, QID, ORAL
     Route: 048
     Dates: start: 20070510, end: 20070512
  2. ASCAL CARDIO (CARBASALATE CALCIUM) [Concomitant]
  3. LABETALOL HCL [Concomitant]
  4. MICARDISPLUS (HYDROCHLOROTHIAZIDE, TELMISARTAN) [Concomitant]
  5. SERETIDE DISKUS (FLUTICASONE PROPIONATE, SALMETEROL XINAFOATE) [Concomitant]
  6. ATROVENT (IPRATROPRIUM BROMIDE) [Concomitant]

REACTIONS (8)
  - BLOOD PRESSURE FLUCTUATION [None]
  - FLANK PAIN [None]
  - HEADACHE [None]
  - HYPERHIDROSIS [None]
  - HYPERTENSION [None]
  - NECK PAIN [None]
  - NERVOUSNESS [None]
  - PHAEOCHROMOCYTOMA [None]
